FAERS Safety Report 10413457 (Version 2)
Quarter: 2014Q3

REPORT INFORMATION
  Report Type: Spontaneous
  Country: US (occurrence: US)
  Receive Date: 20140827
  Receipt Date: 20140827
  Transmission Date: 20150326
  Serious: Yes (Other)
  Sender: FDA-Public Use
  Company Number: US-009507513-97062576

PATIENT
  Sex: Female

DRUGS (3)
  1. CALCIUM (UNSPECIFIED) [Concomitant]
     Active Substance: CALCIUM
  2. FOSAMAX [Suspect]
     Active Substance: ALENDRONATE SODIUM
     Indication: OSTEOPOROSIS
     Dosage: UNK
     Route: 048
  3. ESTROGEN NOS [Concomitant]
     Active Substance: ESTROGENS

REACTIONS (2)
  - Femur fracture [Unknown]
  - Haematochezia [Unknown]
